FAERS Safety Report 19280310 (Version 2)
Quarter: 2021Q2

REPORT INFORMATION
  Report Type: Spontaneous
  Country: JP (occurrence: JP)
  Receive Date: 20210520
  Receipt Date: 20210524
  Transmission Date: 20210717
  Serious: Yes (Hospitalization, Other)
  Sender: FDA-Public Use
  Company Number: JP-UCBSA-2021023364

PATIENT
  Age: 90 Year
  Sex: Female

DRUGS (1)
  1. E KEPPRA [Suspect]
     Active Substance: LEVETIRACETAM
     Indication: EPILEPSY
     Dosage: 2000 MG DAILY
     Route: 048

REACTIONS (3)
  - Altered state of consciousness [Unknown]
  - Epilepsy [Unknown]
  - Treatment noncompliance [Unknown]
